FAERS Safety Report 21528448 (Version 2)
Quarter: 2022Q4

REPORT INFORMATION
  Report Type: Spontaneous
  Country: JP (occurrence: JP)
  Receive Date: 20221031
  Receipt Date: 20221104
  Transmission Date: 20230112
  Serious: Yes (Hospitalization, Other)
  Sender: FDA-Public Use
  Company Number: JP-GLAXOSMITHKLINE-JP2022JPN154078

PATIENT

DRUGS (1)
  1. VALTREX [Suspect]
     Active Substance: VALACYCLOVIR HYDROCHLORIDE
     Dosage: 2000 MG/DAY

REACTIONS (6)
  - Acute kidney injury [Unknown]
  - Toxic encephalopathy [Unknown]
  - Altered state of consciousness [Unknown]
  - Fall [Unknown]
  - Communication disorder [Unknown]
  - Dehydration [Unknown]
